FAERS Safety Report 10396681 (Version 1)
Quarter: 2014Q3

REPORT INFORMATION
  Report Type: Spontaneous
  Country: US (occurrence: US)
  Receive Date: 20140820
  Receipt Date: 20140820
  Transmission Date: 20150326
  Serious: Yes (Other)
  Sender: FDA-Public Use
  Company Number: US-GLAXOSMITHKLINE-A1084869A

PATIENT
  Sex: Female

DRUGS (5)
  1. NEBULIZER [Concomitant]
     Active Substance: UNSPECIFIED INGREDIENT
  2. UNKNOWN MEDICATION [Concomitant]
     Active Substance: UNSPECIFIED INGREDIENT
  3. ALBUTEROL. [Concomitant]
     Active Substance: ALBUTEROL
  4. ADVAIR HFA [Suspect]
     Active Substance: FLUTICASONE PROPIONATE\SALMETEROL XINAFOATE
     Indication: ASTHMA
     Dosage: 1PUFF AS REQUIRED
     Dates: start: 1994
  5. UNKNOWN CANCER THERAPY DRUG [Concomitant]

REACTIONS (5)
  - Arthropathy [Unknown]
  - Arthritis [Unknown]
  - Breast cancer recurrent [Not Recovered/Not Resolved]
  - Lymphoedema [Unknown]
  - Gait disturbance [Unknown]
